FAERS Safety Report 6592955-4 (Version None)
Quarter: 2010Q1

REPORT INFORMATION
  Report Type: 
  Country: None (occurrence: None)
  Receive Date: 20100222
  Receipt Date: 20100212
  Transmission Date: 20100710
  Serious: Yes (Hospitalization, Other)
  Sender: FDA-Public Use
  Company Number: US-ELI_LILLY_AND_COMPANY-US200910007276

PATIENT
  Sex: Female
  Weight: 81.633 kg

DRUGS (7)
  1. BYETTA [Suspect]
     Indication: TYPE 2 DIABETES MELLITUS
     Dates: start: 20070101
  2. BYETTA [Suspect]
     Dosage: 5 UG, 2/D
     Route: 058
     Dates: start: 20080101, end: 20080201
  3. BYETTA [Suspect]
     Dosage: 10 UG, 2/D
     Route: 058
     Dates: start: 20080201, end: 20090301
  4. BYETTA [Suspect]
     Dosage: 5 UG, 2/D
     Route: 058
     Dates: start: 20090801, end: 20090901
  5. BYETTA [Suspect]
     Dosage: 10 UG, 2/D
     Route: 058
     Dates: start: 20090901
  6. METFORMIN [Concomitant]
     Dosage: UNK, 2/D
  7. SYNTHROID [Concomitant]
     Dosage: UNK, 2/D

REACTIONS (18)
  - ABDOMINAL HERNIA [None]
  - AUTOIMMUNE HEPATITIS [None]
  - BLOOD GLUCOSE INCREASED [None]
  - DECREASED APPETITE [None]
  - DEPRESSION [None]
  - DYSPEPSIA [None]
  - FATIGUE [None]
  - HYPERSOMNIA [None]
  - INGUINAL HERNIA [None]
  - LIVER FUNCTION TEST ABNORMAL [None]
  - NAUSEA [None]
  - OESOPHAGITIS [None]
  - PAIN [None]
  - PROCEDURAL COMPLICATION [None]
  - PROCEDURAL PAIN [None]
  - SYSTEMIC LUPUS ERYTHEMATOSUS [None]
  - VOMITING [None]
  - WEIGHT DECREASED [None]
